FAERS Safety Report 6846280-4 (Version None)
Quarter: 2010Q3

REPORT INFORMATION
  Report Type: 
  Country: None (occurrence: None)
  Receive Date: 20100715
  Receipt Date: 20071022
  Transmission Date: 20110219
  Serious: No
  Sender: FDA-Public Use
  Company Number: US-PFIZER INC-2007077220

PATIENT
  Sex: Female

DRUGS (6)
  1. CHANTIX [Suspect]
     Indication: SMOKING CESSATION THERAPY
     Route: 048
     Dates: start: 20060101
  2. WELLBUTRIN [Concomitant]
  3. GEODON [Concomitant]
  4. KLONOPIN [Concomitant]
  5. LUNESTA [Concomitant]
  6. GLUCOPHAGE [Concomitant]

REACTIONS (1)
  - INFLUENZA LIKE ILLNESS [None]
